FAERS Safety Report 25030773 (Version 1)
Quarter: 2025Q1

REPORT INFORMATION
  Report Type: Spontaneous
  Country: US (occurrence: US)
  Receive Date: 20250303
  Receipt Date: 20250303
  Transmission Date: 20250409
  Serious: No
  Sender: BRISTOL-MYERS SQUIBB COMPANY
  Company Number: US-MLMSERVICE-20250219-PI414157-00323-3

PATIENT
  Age: 58 Year
  Sex: Female

DRUGS (2)
  1. TRIAMCINOLONE ACETONIDE [Suspect]
     Active Substance: TRIAMCINOLONE ACETONIDE
     Indication: Tendonitis
  2. LIDOCAINE [Concomitant]
     Active Substance: LIDOCAINE
     Indication: Tendonitis

REACTIONS (6)
  - Skin atrophy [Not Recovered/Not Resolved]
  - Purpura [Unknown]
  - Telangiectasia [Unknown]
  - Haemosiderosis [Unknown]
  - Ecchymosis [Unknown]
  - Off label use [Unknown]
